FAERS Safety Report 6369366-X (Version None)
Quarter: 2009Q3

REPORT INFORMATION
  Report Type: 
  Country: None (occurrence: None)
  Receive Date: 20090917
  Receipt Date: 20090908
  Transmission Date: 20100115
  Serious: No
  Sender: FDA-Public Use
  Company Number: 374041

PATIENT
  Age: 59 Year
  Sex: Male
  Weight: 90.9 kg

DRUGS (2)
  1. HEPARIN SODIUM 5,000 UNITS IN DEXTROSE 5% [Suspect]
     Indication: DRUG USE FOR UNKNOWN INDICATION
     Dosage: 25,000 UNITS, UNKNOWN, UNKNOWN, INTRAVENOUS
     Route: 042
     Dates: start: 20090903, end: 20090903
  2. SODIUM CHLORIDE 0.9% [Concomitant]

REACTIONS (5)
  - ACTIVATED PARTIAL THROMBOPLASTIN TIME PROLONGED [None]
  - HYPOAESTHESIA [None]
  - OVERDOSE [None]
  - PARAESTHESIA [None]
  - PULMONARY EMBOLISM [None]
